FAERS Safety Report 20057705 (Version 1)
Quarter: 2021Q4

REPORT INFORMATION
  Report Type: Spontaneous
  Country: CN (occurrence: CN)
  Receive Date: 20211111
  Receipt Date: 20211111
  Transmission Date: 20220303
  Serious: Yes (Other)
  Sender: FDA-Public Use
  Company Number: CN-SLATE RUN PHARMACEUTICALS-21CN000762

PATIENT

DRUGS (4)
  1. POTASSIUM CHLORIDE [Suspect]
     Active Substance: POTASSIUM CHLORIDE
     Indication: Hypokalaemia
     Dosage: 30 MILLILITRE
     Route: 042
  2. POTASSIUM CHLORIDE [Suspect]
     Active Substance: POTASSIUM CHLORIDE
     Dosage: 30 MILLILITRE
     Route: 042
  3. SODIUM CHLORIDE [Suspect]
     Active Substance: SODIUM CHLORIDE
     Indication: Hypokalaemia
     Dosage: 20 MILLILITRE
     Route: 042
  4. SODIUM CHLORIDE [Suspect]
     Active Substance: SODIUM CHLORIDE
     Dosage: 20 MILLILITRE
     Route: 042

REACTIONS (5)
  - Infusion site extravasation [Recovered/Resolved]
  - Infusion site haematoma [Recovered/Resolved]
  - Product administered at inappropriate site [Recovered/Resolved]
  - Peripheral swelling [Recovered/Resolved]
  - Infusion site vesicles [Recovered/Resolved]
